FAERS Safety Report 20866699 (Version 1)
Quarter: 2022Q2

REPORT INFORMATION
  Report Type: Spontaneous
  Country: US (occurrence: None)
  Receive Date: 20220524
  Receipt Date: 20220524
  Transmission Date: 20220720
  Serious: Yes (Hospitalization, Other)
  Sender: FDA-Public Use
  Company Number: US-ROCHE-3099099

PATIENT
  Sex: Female

DRUGS (1)
  1. PULMOZYME [Suspect]
     Active Substance: DORNASE ALFA
     Indication: Cystic fibrosis

REACTIONS (4)
  - Maternal exposure during pregnancy [Unknown]
  - Infective pulmonary exacerbation of cystic fibrosis [Unknown]
  - Cystic fibrosis related diabetes [Unknown]
  - Infertility [Unknown]
